FAERS Safety Report 21935676 (Version 1)
Quarter: 2023Q1

REPORT INFORMATION
  Report Type: Spontaneous
  Country: US (occurrence: None)
  Receive Date: 20230131
  Receipt Date: 20230131
  Transmission Date: 20230417
  Serious: Yes (Other)
  Sender: FDA-Public Use
  Company Number: None

PATIENT
  Age: 55 Year
  Sex: Male
  Weight: 92.25 kg

DRUGS (6)
  1. HERBALS\MITRAGYNINE [Suspect]
     Active Substance: HERBALS\MITRAGYNINE
     Indication: Anxiety
  2. HERBALS\MITRAGYNINE [Suspect]
     Active Substance: HERBALS\MITRAGYNINE
     Indication: Asthenia
  3. HERBALS\MITRAGYNINE [Suspect]
     Active Substance: HERBALS\MITRAGYNINE
     Indication: Depression
  4. LISINOPRIL [Concomitant]
     Active Substance: LISINOPRIL
  5. VALIUM [Concomitant]
     Active Substance: DIAZEPAM
  6. MOTRIN [Concomitant]
     Active Substance: IBUPROFEN

REACTIONS (4)
  - Loss of consciousness [None]
  - Head injury [None]
  - Concussion [None]
  - Dependence [None]

NARRATIVE: CASE EVENT DATE: 20220314
